FAERS Safety Report 5603216-1 (Version None)
Quarter: 2008Q1

REPORT INFORMATION
  Report Type: 
  Country: None (occurrence: None)
  Receive Date: 20080125
  Receipt Date: 20080116
  Transmission Date: 20080703
  Serious: Yes (Other)
  Sender: FDA-Public Use
  Company Number: US-PFIZER INC-2008005093

PATIENT
  Sex: Female
  Weight: 90.909 kg

DRUGS (3)
  1. ZOLOFT [Suspect]
     Indication: DEPRESSION
  2. CHANTIX [Suspect]
     Indication: EX-SMOKER
     Dates: start: 20080103, end: 20080106
  3. INSULIN [Concomitant]

REACTIONS (3)
  - ANXIETY [None]
  - PARANOIA [None]
  - UNRESPONSIVE TO STIMULI [None]
